FAERS Safety Report 4623870-0 (Version None)
Quarter: 2005Q1

REPORT INFORMATION
  Report Type: 
  Country: None (occurrence: None)
  Receive Date: 20050331
  Receipt Date: 20050315
  Transmission Date: 20050727
  Serious: Yes (Death)
  Sender: FDA-Public Use
  Company Number: GB-BOEHRINGER INGELHEIM PHARMACEUTICALS, INC.-2005-UK-00454UK

PATIENT
  Sex: Male

DRUGS (16)
  1. ATROVENT [Suspect]
  2. LACTULOSE [Concomitant]
  3. FUROSEMIDE [Concomitant]
  4. THEOPHYLLINE [Concomitant]
  5. OMEPRAXOLE [Concomitant]
  6. SALAMOL NEBULISER [Concomitant]
  7. PEPTAC [Concomitant]
  8. SYMBICORT TURBUHALER [Concomitant]
  9. MEBEVERINE [Concomitant]
  10. PREDNISOLONE [Concomitant]
  11. PARACETAMOL [Concomitant]
  12. CARBOCISTEINE [Concomitant]
  13. ASPIRIN [Concomitant]
  14. FINASTERIDE [Concomitant]
  15. BETAHISTINE [Concomitant]
  16. RISEDRONATE SODIUM [Concomitant]

REACTIONS (2)
  - CHRONIC OBSTRUCTIVE PULMONARY DISEASE [None]
  - LOWER RESPIRATORY TRACT INFECTION [None]
